FAERS Safety Report 12759833 (Version 1)
Quarter: 2016Q3

REPORT INFORMATION
  Report Type: Report from Study
  Country: US (occurrence: US)
  Receive Date: 20160919
  Receipt Date: 20160919
  Transmission Date: 20161109
  Serious: Yes (Other)
  Sender: FDA-Public Use
  Company Number: US-BAYER-2016-179844

PATIENT
  Age: 85 Year
  Sex: Female

DRUGS (1)
  1. NEXAVAR [Suspect]
     Active Substance: SORAFENIB
     Indication: HEPATOCELLULAR CARCINOMA
     Dosage: 200 MG, QD
     Route: 048
     Dates: start: 20160811

REACTIONS (8)
  - Blood pressure fluctuation [None]
  - Epistaxis [Recovered/Resolved]
  - Fatigue [None]
  - Weight decreased [None]
  - Nausea [None]
  - Dysphonia [None]
  - Rash papular [None]
  - Diarrhoea [None]

NARRATIVE: CASE EVENT DATE: 201608
